FAERS Safety Report 9074314 (Version 1)
Quarter: 2013Q1

REPORT INFORMATION
  Report Type: Report from Study
  Country: US (occurrence: US)
  Receive Date: 20130128
  Receipt Date: 20130128
  Transmission Date: 20140127
  Serious: No
  Sender: FDA-Public Use
  Company Number: US-ABBOTT-12P-163-0911722-00

PATIENT
  Age: 35 Year
  Sex: Female

DRUGS (8)
  1. HUMIRA 40 MG/0.8 ML PEN [Suspect]
     Indication: CROHN^S DISEASE
     Dates: start: 20111111
  2. CANASA [Concomitant]
     Indication: PRODUCT USED FOR UNKNOWN INDICATION
     Dosage: 1 TWICE DAILY
  3. LIALDA [Concomitant]
     Indication: CROHN^S DISEASE
     Dosage: ^I THINK IT^S 1.2 GRAMS EACH^, 4 TABS AT BEDTIME
  4. ANUSOL [Concomitant]
     Indication: HAEMORRHOIDS
     Dosage: AS NEEDED
  5. ELAVIL [Concomitant]
     Indication: CYSTITIS INTERSTITIAL
     Dosage: AT BEDTIME
  6. COUMADIN [Concomitant]
     Indication: PRODUCT USED FOR UNKNOWN INDICATION
  7. COUMADIN [Concomitant]
     Dosage: 2 DAYS AT THIS TIME
  8. PROVENTIL [Concomitant]
     Indication: HYPERSENSITIVITY
     Dosage: AS NEEDED

REACTIONS (4)
  - Pyrexia [Not Recovered/Not Resolved]
  - Injection site erythema [Not Recovered/Not Resolved]
  - Injection site papule [Not Recovered/Not Resolved]
  - Injection site warmth [Not Recovered/Not Resolved]
